FAERS Safety Report 23655580 (Version 1)
Quarter: 2024Q1

REPORT INFORMATION
  Report Type: Spontaneous
  Country: FR (occurrence: FR)
  Receive Date: 20240321
  Receipt Date: 20240321
  Transmission Date: 20240410
  Serious: Yes (Hospitalization, Other)
  Sender: FDA-Public Use
  Company Number: FR-SA-2021SA081842

PATIENT
  Age: 70 Year
  Sex: Male
  Weight: 125 kg

DRUGS (8)
  1. FUSIDIC ACID [Suspect]
     Active Substance: FUSIDIC ACID
     Indication: Folate deficiency
     Dosage: 4 DOSAGE FORM, ONCE A DAY
     Route: 048
     Dates: end: 20210216
  2. FOLIC ACID [Suspect]
     Active Substance: FOLIC ACID
     Indication: Folate deficiency
     Dosage: 10 MILLIGRAM, ONCE A DAY
     Route: 065
     Dates: end: 20230216
  3. TAMSULOSIN [Suspect]
     Active Substance: TAMSULOSIN
     Indication: Hypokalaemia
     Dosage: 6 DOSAGE FORM, ONCE A DAY
     Route: 048
     Dates: end: 20210216
  4. FUROSEMIDE [Suspect]
     Active Substance: FUROSEMIDE
     Indication: Hypertension
     Dosage: 125 MILLIGRAM, ONCE A DAY
     Route: 048
     Dates: end: 20210216
  5. AMBROXOL [Suspect]
     Active Substance: AMBROXOL
     Indication: Gout
     Dosage: 1 DOSAGE FORM, ONCE A DAY
     Route: 048
     Dates: end: 20210216
  6. FEBUXOSTAT [Suspect]
     Active Substance: FEBUXOSTAT
     Indication: Gout
     Dosage: DOSE DESCRIPTION : UNK
     Route: 048
     Dates: end: 20210216
  7. POTASSIUM CHLORIDE [Suspect]
     Active Substance: POTASSIUM CHLORIDE
     Indication: Hypokalaemia
     Dosage: 6 DOSAGE FORM, ONCE A DAY
     Route: 048
     Dates: end: 20210216
  8. IOMEPROL [Suspect]
     Active Substance: IOMEPROL
     Indication: Computerised tomogram abdomen
     Dosage: 120 MILLILITER
     Route: 054
     Dates: end: 20210214

REACTIONS (2)
  - Acute kidney injury [Recovering/Resolving]
  - Overdose [Unknown]

NARRATIVE: CASE EVENT DATE: 20200213
